FAERS Safety Report 24972141 (Version 2)
Quarter: 2025Q3

REPORT INFORMATION
  Report Type: Spontaneous
  Country: US (occurrence: None)
  Receive Date: 20250214
  Receipt Date: 20250816
  Transmission Date: 20251021
  Serious: Yes (Hospitalization)
  Sender: ALEXION PHARMACEUTICALS
  Company Number: US-AstraZeneca-2010SE27425

PATIENT
  Sex: Female

DRUGS (2)
  1. NEXIUM [Suspect]
     Active Substance: ESOMEPRAZOLE MAGNESIUM
     Dosage: 40 MILLIGRAM, QD
  2. PEPCID AC [Suspect]
     Active Substance: FAMOTIDINE

REACTIONS (5)
  - Tinnitus [Unknown]
  - Faeces discoloured [Unknown]
  - Haemorrhage [Unknown]
  - Illness [Unknown]
  - Product dose omission issue [Unknown]
